FAERS Safety Report 23937929 (Version 1)
Quarter: 2024Q2

REPORT INFORMATION
  Report Type: Spontaneous
  Country: JP (occurrence: JP)
  Receive Date: 20240604
  Receipt Date: 20240604
  Transmission Date: 20240716
  Serious: Yes (Other)
  Sender: FDA-Public Use
  Company Number: JP-PFIZER INC-PV202400071880

PATIENT
  Age: 46 Year
  Sex: Male

DRUGS (2)
  1. LORBRENA [Suspect]
     Active Substance: LORLATINIB
     Indication: Lung neoplasm malignant
     Dosage: 100 MG
     Route: 048
  2. LORBRENA [Suspect]
     Active Substance: LORLATINIB
     Dosage: 75 MG
     Route: 048

REACTIONS (7)
  - Alcohol poisoning [Recovering/Resolving]
  - Weight increased [Unknown]
  - Patient elopement [Unknown]
  - Oedema peripheral [Unknown]
  - Cancer pain [Recovering/Resolving]
  - Restlessness [Recovering/Resolving]
  - Memory impairment [Unknown]
